FAERS Safety Report 19660269 (Version 1)
Quarter: 2021Q3

REPORT INFORMATION
  Report Type: Spontaneous
  Country: US (occurrence: US)
  Receive Date: 20210804
  Receipt Date: 20210804
  Transmission Date: 20211014
  Serious: No
  Sender: FDA-Public Use
  Company Number: None

PATIENT
  Age: 6 Week
  Sex: Male

DRUGS (2)
  1. CARBOPLATIN. [Suspect]
     Active Substance: CARBOPLATIN
     Route: 042
     Dates: start: 20210729, end: 20210729
  2. BD PHASEAL OPTIMA [DEVICE] [Suspect]
     Active Substance: DEVICE

REACTIONS (2)
  - Device connection issue [None]
  - Incorrect dose administered [None]

NARRATIVE: CASE EVENT DATE: 20210729
